FAERS Safety Report 5216179-8 (Version None)
Quarter: 2007Q1

REPORT INFORMATION
  Report Type: 
  Country: None (occurrence: None)
  Receive Date: 20070123
  Receipt Date: 20070116
  Transmission Date: 20070707
  Serious: Yes (Hospitalization)
  Sender: FDA-Public Use
  Company Number: JP-PFIZER INC-2006107491

PATIENT
  Sex: Male
  Weight: 70.1 kg

DRUGS (9)
  1. SU-011,248 [Suspect]
     Indication: RENAL CELL CARCINOMA STAGE UNSPECIFIED
     Route: 048
     Dates: start: 20060328, end: 20060412
  2. SU-011,248 [Suspect]
     Route: 048
  3. CANDESARTAN CILEXETIL [Concomitant]
     Route: 048
  4. REBAMIPIDE [Concomitant]
     Route: 048
  5. MAGNESIUM OXIDE [Concomitant]
     Route: 048
  6. RANITIDINE HYDROCHLORIDE [Concomitant]
     Route: 048
  7. POSTERISAN FORTE [Concomitant]
     Route: 061
     Dates: start: 20060624, end: 20060904
  8. LOXOPROFEN SODIUM [Concomitant]
     Route: 048
     Dates: start: 20060406, end: 20060904
  9. TRIAMCINOLONE ACETONIDE [Concomitant]
     Route: 061
     Dates: start: 20060411

REACTIONS (4)
  - ANAL ULCER [None]
  - NAUSEA [None]
  - UPPER GASTROINTESTINAL HAEMORRHAGE [None]
  - VOMITING [None]
